FAERS Safety Report 4717007-7 (Version None)
Quarter: 2005Q3

REPORT INFORMATION
  Report Type: 
  Country: None (occurrence: None)
  Receive Date: 20050719
  Receipt Date: 20050705
  Transmission Date: 20060218
  Serious: Yes (Death, Other)
  Sender: FDA-Public Use
  Company Number: JP-JNJFOC-20050701617

PATIENT
  Age: 47 Year
  Sex: Female

DRUGS (2)
  1. ITRIZOLE [Suspect]
     Indication: PNEUMONIA ASPERGILLUS
     Route: 048
  2. VELCADE [Suspect]
     Indication: MULTIPLE MYELOMA
     Route: 042

REACTIONS (1)
  - PNEUMONIA [None]
